FAERS Safety Report 7831545-X (Version None)
Quarter: 2011Q4

REPORT INFORMATION
  Report Type: 
  Country: None (occurrence: None)
  Receive Date: 20111021
  Receipt Date: 20111017
  Transmission Date: 20120403
  Serious: Yes (Other)
  Sender: FDA-Public Use
  Company Number: CHPA2011US14325

PATIENT
  Age: 69 Year
  Sex: Male

DRUGS (3)
  1. NEXIUM [Concomitant]
     Dosage: 1 DF, QD
     Route: 048
  2. BENEFIBER W/ WHEAT DEXTRIN [Suspect]
     Dosage: UNK , UNK
     Route: 048
  3. BENEFIBER W/ WHEAT DEXTRIN [Suspect]
     Indication: DIARRHOEA
     Dosage: 3 TSP, QHS
     Route: 048
     Dates: start: 20110101

REACTIONS (6)
  - OFF LABEL USE [None]
  - THROMBOSIS [None]
  - INCORRECT DOSE ADMINISTERED [None]
  - BOWEL MOVEMENT IRREGULARITY [None]
  - HYPOTHYROIDISM [None]
  - ABDOMINAL DISTENSION [None]
